FAERS Safety Report 6126779-9 (Version None)
Quarter: 2009Q1

REPORT INFORMATION
  Report Type: 
  Country: None (occurrence: None)
  Receive Date: 20090320
  Receipt Date: 20090310
  Transmission Date: 20090719
  Serious: Yes (Death, Hospitalization)
  Sender: FDA-Public Use
  Company Number: GB-PFIZER INC-2009181595

PATIENT

DRUGS (7)
  1. SUNITINIB MALATE [Suspect]
     Indication: GASTROINTESTINAL STROMAL TUMOUR
     Dosage: 25 MG, 1X/DAY
     Route: 048
     Dates: start: 20080922, end: 20090309
  2. METFORMIN HYDROCHLORIDE [Concomitant]
     Dosage: 850 MG, 3X/DAY
     Route: 048
     Dates: start: 20040701, end: 20090309
  3. ATENOLOL [Concomitant]
     Dosage: 50 MG, 1X/DAY
     Route: 048
     Dates: start: 20050701, end: 20090309
  4. RAMIPRIL [Concomitant]
     Dosage: 5 MG, 1X/DAY
     Route: 048
     Dates: start: 20050701, end: 20090309
  5. SIMVASTATIN [Concomitant]
     Dosage: 10 MG, 1X/DAY
     Route: 048
     Dates: start: 20050501, end: 20090309
  6. DERMOVATE CREAM [Concomitant]
     Dosage: 0.05 %, 2X/DAY
     Route: 061
     Dates: start: 20090112, end: 20090302
  7. EPADERM OINTMENT [Concomitant]
     Dosage: UNK
     Route: 061
     Dates: start: 20090302, end: 20090309

REACTIONS (1)
  - DEATH [None]
